FAERS Safety Report 6149973-X (Version None)
Quarter: 2009Q2

REPORT INFORMATION
  Report Type: 
  Country: None (occurrence: None)
  Receive Date: 20090409
  Receipt Date: 20090403
  Transmission Date: 20091009
  Serious: Yes (Death)
  Sender: FDA-Public Use
  Company Number: A0777642A

PATIENT
  Age: 80 Year
  Sex: Male
  Weight: 83.2 kg

DRUGS (5)
  1. AVANDIA [Suspect]
     Dosage: 4MG PER DAY
     Route: 048
     Dates: start: 20050520, end: 20060209
  2. TOPROL-XL [Concomitant]
     Dates: start: 20040904, end: 20060201
  3. FUROSEMIDE [Concomitant]
     Dates: start: 20030101, end: 20060201
  4. LIPITOR [Concomitant]
     Dates: start: 20030101, end: 20060101
  5. NITRO-DUR [Concomitant]
     Dates: start: 20010101, end: 20060201

REACTIONS (1)
  - MYOCARDIAL INFARCTION [None]
